FAERS Safety Report 10277371 (Version 1)
Quarter: 2014Q3

REPORT INFORMATION
  Report Type: Other
  Country: US (occurrence: US)
  Receive Date: 20140703
  Receipt Date: 20140703
  Transmission Date: 20150326
  Serious: Yes (Other)
  Sender: FDA-Public Use
  Company Number: US-BRISTOL-MYERS SQUIBB COMPANY-21159561

PATIENT
  Age: 48 Year
  Sex: Female

DRUGS (5)
  1. ATAZANAVIR [Concomitant]
     Active Substance: ATAZANAVIR
     Indication: HIV INFECTION
     Dates: start: 201206
  2. DEXAMETHASONE. [Interacting]
     Active Substance: DEXAMETHASONE
     Indication: NECK PAIN
  3. TRIAMCINOLONE [Suspect]
     Active Substance: TRIAMCINOLONE
     Indication: NECK PAIN
     Dosage: 2 CERVICAL EPIDURAL INJECTIONS + 2 TROCHANTERIC BURSA INJECTIONS?BEFORE RITO:1 YR?20MG:TOTAL 40MG
     Route: 008
  4. RITONAVIR [Interacting]
     Active Substance: RITONAVIR
     Indication: HIV INFECTION
     Route: 048
     Dates: start: 201206
  5. EMTRICITABINE/TENOFOVIR DISOPROXIL FUMARATE [Concomitant]
     Active Substance: EMTRICITABINE\TENOFOVIR DISOPROXIL
     Indication: HIV INFECTION
     Dosage: TABLET?1 DF: 200/300 MG
     Dates: start: 201206

REACTIONS (4)
  - Adrenal insufficiency [Unknown]
  - Cushing^s syndrome [Unknown]
  - Drug interaction [Unknown]
  - Oesophagitis [Recovering/Resolving]
